FAERS Safety Report 4645170-5 (Version None)
Quarter: 2005Q2

REPORT INFORMATION
  Report Type: 
  Country: None (occurrence: None)
  Receive Date: 20050426
  Receipt Date: 20050420
  Transmission Date: 20051028
  Serious: Yes (Hospitalization)
  Sender: FDA-Public Use
  Company Number: US-BRISTOL-MYERS SQUIBB COMPANY-12940714

PATIENT
  Age: 62 Year
  Weight: 50 kg

DRUGS (3)
  1. CYCLOPHOSPHAMIDE [Suspect]
     Indication: ILL-DEFINED DISORDER
     Route: 042
     Dates: start: 20050125, end: 20050125
  2. FARMORUBICIN [Suspect]
     Indication: ILL-DEFINED DISORDER
     Route: 042
     Dates: start: 20050125, end: 20050125
  3. METOPROLOL TARTRATE [Concomitant]

REACTIONS (1)
  - TACHYARRHYTHMIA [None]
